APPROVED DRUG PRODUCT: FLUDARABINE PHOSPHATE
Active Ingredient: FLUDARABINE PHOSPHATE
Strength: 50MG/2ML (25MG/ML)
Dosage Form/Route: INJECTABLE;INJECTION
Application: A076661 | Product #001 | TE Code: AP1
Applicant: SAGENT PHARMACEUTICALS INC
Approved: Apr 28, 2004 | RLD: No | RS: No | Type: RX